FAERS Safety Report 7024530 (Version 10)
Quarter: 2014Q2

REPORT INFORMATION
  Report Type: Spontaneous
  Country: US (occurrence: US)
  Receive Date: 20090616
  Receipt Date: 20140428
  Transmission Date: 20141212
  Serious: Yes (Hospitalization)
  Sender: FDA-Public Use
  Company Number: US-BIOGENIDEC-2009BI017225

PATIENT
  Age: 55 Year
  Sex: Female
  Weight: 93 kg

DRUGS (9)
  1. AVONEX [Suspect]
     Indication: MULTIPLE SCLEROSIS
     Route: 030
     Dates: start: 20051201, end: 200907
  2. AVONEX [Suspect]
     Indication: MULTIPLE SCLEROSIS
     Route: 030
     Dates: start: 200910, end: 20100331
  3. AVONEX [Suspect]
     Indication: MULTIPLE SCLEROSIS
     Route: 030
     Dates: start: 2010, end: 20101101
  4. AVONEX [Suspect]
     Indication: MULTIPLE SCLEROSIS
     Route: 030
     Dates: start: 20110223, end: 20130228
  5. AVONEX [Suspect]
     Indication: MULTIPLE SCLEROSIS
     Route: 030
     Dates: start: 20130313
  6. AVONEX [Suspect]
     Indication: MULTIPLE SCLEROSIS
     Route: 030
     Dates: end: 20130606
  7. CYMBALTA [Concomitant]
  8. VALIUM [Concomitant]
  9. DIOVAN [Concomitant]
     Indication: HYPERTENSION

REACTIONS (22)
  - Colon cancer [Not Recovered/Not Resolved]
  - Bone cancer [Recovered/Resolved]
  - Joint swelling [Recovered/Resolved]
  - Arthralgia [Recovered/Resolved]
  - Fall [Recovered/Resolved]
  - Hypoaesthesia [Not Recovered/Not Resolved]
  - Spinal column stenosis [Not Recovered/Not Resolved]
  - Osteosclerosis [Not Recovered/Not Resolved]
  - Fibromyalgia [Not Recovered/Not Resolved]
  - Large intestine polyp [Unknown]
  - Infusion site reaction [Unknown]
  - Oesophageal perforation [Unknown]
  - Gastric perforation [Unknown]
  - Gastrointestinal disorder [Not Recovered/Not Resolved]
  - Laceration [Recovered/Resolved]
  - Frustration [Unknown]
  - Memory impairment [Unknown]
  - Ocular discomfort [Unknown]
  - Musculoskeletal disorder [Not Recovered/Not Resolved]
  - Arthropathy [Recovered/Resolved]
  - Confusional state [Unknown]
  - Headache [Recovered/Resolved]
